FAERS Safety Report 11296133 (Version 2)
Quarter: 2015Q4

REPORT INFORMATION
  Report Type: Spontaneous
  Country: US (occurrence: US)
  Receive Date: 20150722
  Receipt Date: 20151027
  Transmission Date: 20160304
  Serious: No
  Sender: FDA-Public Use
  Company Number: US-ELI_LILLY_AND_COMPANY-US201004001891

PATIENT
  Sex: Female

DRUGS (3)
  1. ACTONEL [Concomitant]
     Active Substance: RISEDRONATE SODIUM
  2. EVISTA [Suspect]
     Active Substance: RALOXIFENE HYDROCHLORIDE
     Indication: OSTEOPOROSIS
     Dates: start: 2007, end: 2008
  3. FORTEO [Suspect]
     Active Substance: TERIPARATIDE
     Indication: OSTEOPOROSIS
     Dosage: 20 UG, DAILY (1/D)
     Dates: start: 200903

REACTIONS (3)
  - Dizziness [Not Recovered/Not Resolved]
  - Injection site bruising [Not Recovered/Not Resolved]
  - Bone density decreased [Unknown]
